FAERS Safety Report 8248846-6 (Version None)
Quarter: 2012Q2

REPORT INFORMATION
  Report Type: 
  Country: None (occurrence: None)
  Receive Date: 20120401
  Receipt Date: 20120320
  Transmission Date: 20120825
  Serious: Yes (Hospitalization)
  Sender: FDA-Public Use
  Company Number: DE-ELI_LILLY_AND_COMPANY-DE201201008369

PATIENT
  Sex: Female

DRUGS (10)
  1. TRAMADOL HYDROCHLORIDE [Concomitant]
     Dosage: 100 MG, BID
     Route: 048
  2. ARCOXIA [Concomitant]
     Dosage: 60 MG, EACH EVENING
  3. CYMBALTA [Suspect]
     Indication: DEPRESSION
     Dosage: 90 MG, QD
     Route: 048
  4. REMIFEMIN [Concomitant]
     Dosage: 2.5 MG, BID
  5. FLUTICASONE PROPIONATE/SALMETEROL [Concomitant]
  6. PANTOPRAZOLE [Concomitant]
     Dosage: 40 MG, EACH MORNING
  7. TRAMADOL HYDROCHLORIDE [Concomitant]
     Dosage: 100 MG, BID
     Route: 048
  8. LEVOTHYROXINE SODIUM [Concomitant]
     Dosage: 100 UG, EACH MORNING
  9. RESOCHIN [Concomitant]
     Dosage: 250 MG, EACH MORNING
  10. TRAMADOL HYDROCHLORIDE [Concomitant]
     Dosage: 200 MG, QD
     Route: 058

REACTIONS (5)
  - RHEUMATOID ARTHRITIS [None]
  - RESTLESSNESS [None]
  - NAUSEA [None]
  - VOMITING [None]
  - RESTLESS LEGS SYNDROME [None]
